FAERS Safety Report 9929847 (Version 1)
Quarter: 2014Q1

REPORT INFORMATION
  Report Type: Report from Study
  Country: US (occurrence: US)
  Receive Date: 20140227
  Receipt Date: 20140227
  Transmission Date: 20141002
  Serious: No
  Sender: FDA-Public Use
  Company Number: US-ABBVIE-12P-163-0985505-00

PATIENT
  Age: 47 Year
  Sex: Female
  Weight: 93.52 kg

DRUGS (4)
  1. HUMIRA (ABBOTT) [Suspect]
     Indication: PSORIATIC ARTHROPATHY
     Dates: start: 2010
  2. UNKNOWN INSULIN (NON-ABBOTT) [Concomitant]
     Indication: DIABETES MELLITUS
  3. UNKNOWN BLOOD PRESSURE MEDICATION (NON-ABBOTT) [Concomitant]
     Indication: HYPERTENSION
  4. UNKNOWN CHOLESTEROL MEDICATION (NON-ABBOTT) [Concomitant]
     Indication: BLOOD CHOLESTEROL INCREASED

REACTIONS (2)
  - Gait disturbance [Not Recovered/Not Resolved]
  - Amnesia [Not Recovered/Not Resolved]
